FAERS Safety Report 8206993-9 (Version None)
Quarter: 2012Q1

REPORT INFORMATION
  Report Type: 
  Country: None (occurrence: None)
  Receive Date: 20120314
  Receipt Date: 20120302
  Transmission Date: 20120608
  Serious: Yes (Hospitalization)
  Sender: FDA-Public Use
  Company Number: US-ELI_LILLY_AND_COMPANY-US201008002264

PATIENT
  Sex: Female
  Weight: 74.83 kg

DRUGS (15)
  1. FORTEO [Suspect]
     Dosage: 20 UG, QD
     Route: 058
  2. XANAX [Concomitant]
  3. SYNTHROID [Concomitant]
  4. FORTEO [Suspect]
     Indication: OSTEOPOROSIS
     Dosage: 20 UG, QD
     Route: 058
     Dates: start: 20100801
  5. NIASPAN [Concomitant]
  6. ASPIRIN [Concomitant]
  7. FORTEO [Suspect]
     Dosage: 20 UG, QD
     Route: 058
  8. FORTEO [Suspect]
     Dosage: 20 UG, QD
  9. LEXAPRO [Concomitant]
  10. VOLTAREN                                /SCH/ [Concomitant]
  11. ZETIA [Concomitant]
  12. L-ARGININE                         /00126101/ [Concomitant]
  13. MIRAPEX [Concomitant]
  14. MULTAQ [Concomitant]
  15. ANALGESICS [Concomitant]
     Indication: PAIN

REACTIONS (5)
  - INTERVERTEBRAL DISC DEGENERATION [None]
  - BACK PAIN [None]
  - DYSSTASIA [None]
  - SCAR [None]
  - MALAISE [None]
